FAERS Safety Report 6623793-1 (Version None)
Quarter: 2010Q1

REPORT INFORMATION
  Report Type: 
  Country: None (occurrence: None)
  Receive Date: 20100310
  Receipt Date: 20100224
  Transmission Date: 20100710
  Serious: Yes (Other)
  Sender: FDA-Public Use
  Company Number: PHEH2010US02740

PATIENT
  Sex: Female

DRUGS (2)
  1. SANDOSTATIN LAR [Suspect]
     Indication: ACROMEGALY
     Dosage: 20 MG, UNK
     Dates: start: 20090601
  2. SANDOSTATIN LAR [Suspect]
     Dosage: UNK
     Dates: start: 20090901

REACTIONS (6)
  - DRUG INEFFECTIVE [None]
  - HYPERSENSITIVITY [None]
  - PARAESTHESIA ORAL [None]
  - PRURITUS [None]
  - THINKING ABNORMAL [None]
  - THROAT IRRITATION [None]
